APPROVED DRUG PRODUCT: INDERAL
Active Ingredient: PROPRANOLOL HYDROCHLORIDE
Strength: 10MG/ML
Dosage Form/Route: SUSPENSION;ORAL
Application: N019536 | Product #001
Applicant: WYETH AYERST LABORATORIES
Approved: Dec 12, 1986 | RLD: No | RS: No | Type: DISCN